FAERS Safety Report 8375970-X (Version None)
Quarter: 2012Q2

REPORT INFORMATION
  Report Type: 
  Country: None (occurrence: None)
  Receive Date: 20120518
  Receipt Date: 20120507
  Transmission Date: 20120825
  Serious: Yes (Other)
  Sender: FDA-Public Use
  Company Number: GGEL20120500528

PATIENT
  Age: 66 Year
  Sex: Male

DRUGS (3)
  1. FOSCARNET (FOSCARNET) (FOSCARNET) [Concomitant]
  2. SULFAMETTHOXAZOLE AND TRIMETHOPRIM [Suspect]
     Indication: EYE INFECTION TOXOPLASMAL
     Dosage: TWICE DAILY, ONCE
  3. VALGANCYCLOVIR (VALGANCYCLVOIR HYDROCHLORIDE) (VALGANCYCLVOIR HYDROCHL [Concomitant]

REACTIONS (8)
  - EYE INFECTION TOXOPLASMAL [None]
  - CONDITION AGGRAVATED [None]
  - VISION BLURRED [None]
  - VITREOUS HAEMORRHAGE [None]
  - RETINAL INFILTRATES [None]
  - LUNG NEOPLASM [None]
  - HILAR LYMPHADENOPATHY [None]
  - VISUAL ACUITY REDUCED [None]
